FAERS Safety Report 4883032-9 (Version None)
Quarter: 2006Q1

REPORT INFORMATION
  Report Type: 
  Country: None (occurrence: None)
  Receive Date: 20060113
  Receipt Date: 20051226
  Transmission Date: 20060701
  Serious: Yes (Hospitalization)
  Sender: FDA-Public Use
  Company Number: FR200512004215

PATIENT
  Age: 70 Year
  Sex: Female

DRUGS (5)
  1. FORTEO [Suspect]
     Indication: OSTEOPOROSIS
     Dosage: 20 UG, DAILY (1/D), SUBCUTANEOUS
     Route: 058
     Dates: start: 20050325, end: 20051105
  2. FORTEO PEN (FORTEO PEN) PEN, DISPOSABLE [Concomitant]
  3. NEO-MERCAZOLE TAB [Concomitant]
  4. ASPIRIN [Concomitant]
  5. ACETAMINOPHEN W/ PROPOXYPHENE HCL [Concomitant]

REACTIONS (2)
  - HYPERCALCAEMIA [None]
  - THYROIDECTOMY [None]
